FAERS Safety Report 6764107-6 (Version None)
Quarter: 2010Q2

REPORT INFORMATION
  Report Type: 
  Country: None (occurrence: None)
  Receive Date: 20100608
  Receipt Date: 20100525
  Transmission Date: 20101027
  Serious: Yes (Hospitalization)
  Sender: FDA-Public Use
  Company Number: 008729

PATIENT
  Sex: Female
  Weight: 50 kg

DRUGS (4)
  1. CIMZIA [Suspect]
     Indication: CROHN'S DISEASE
     Dosage: (400 MG 1X/2 WEEKS SUBCUTANEOUS)
     Route: 058
     Dates: start: 20100211, end: 20100311
  2. METHOTREXATE [Concomitant]
  3. IMURAN [Concomitant]
  4. PREDNISONE [Concomitant]

REACTIONS (5)
  - ABSCESS [None]
  - INTESTINAL OBSTRUCTION [None]
  - INTESTINAL PERFORATION [None]
  - OFF LABEL USE [None]
  - WOUND [None]
